FAERS Safety Report 8265883-6 (Version None)
Quarter: 2012Q2

REPORT INFORMATION
  Report Type: 
  Country: None (occurrence: None)
  Receive Date: 20120406
  Receipt Date: 20120327
  Transmission Date: 20120825
  Serious: Yes (Hospitalization)
  Sender: FDA-Public Use
  Company Number: FR-GLAXOSMITHKLINE-B0791307A

PATIENT
  Sex: Male
  Weight: 66 kg

DRUGS (6)
  1. ARIXTRA [Suspect]
     Indication: THROMBOSIS PROPHYLAXIS
     Dosage: 2.5MG PER DAY
     Route: 058
     Dates: start: 20120115, end: 20120131
  2. SOTALOL HCL [Concomitant]
  3. LOSARTAN POTASSIUM [Concomitant]
     Dosage: 50UNIT PER DAY
  4. ASPIRIN [Concomitant]
     Dosage: 75UNIT PER DAY
  5. FERROUS FUMARATE [Concomitant]
     Dosage: 66MG TWICE PER DAY
  6. ACETAMINOPHEN [Concomitant]
     Dosage: 500UNIT SIX TIMES PER DAY

REACTIONS (1)
  - THROMBOCYTOSIS [None]
